FAERS Safety Report 4283871-1 (Version None)
Quarter: 2004Q1

REPORT INFORMATION
  Report Type: 
  Country: None (occurrence: None)
  Receive Date: 20040130
  Receipt Date: 20040116
  Transmission Date: 20041129
  Serious: Yes (Other)
  Sender: FDA-Public Use
  Company Number: 204239

PATIENT
  Age: 83 Year
  Sex: Female

DRUGS (1)
  1. RAPTIVA [Suspect]
     Indication: PSORIASIS
     Dosage: 70 MG, 1/WEEK, SUBCUTANEOUS
     Route: 058
     Dates: start: 20031211

REACTIONS (4)
  - GRANULOMA [None]
  - PSORIASIS [None]
  - RASH PUSTULAR [None]
  - WHITE BLOOD CELL COUNT INCREASED [None]
